FAERS Safety Report 10279823 (Version 1)
Quarter: 2014Q3

REPORT INFORMATION
  Report Type: Spontaneous
  Country: US (occurrence: None)
  Receive Date: 20140701
  Receipt Date: 20140701
  Transmission Date: 20150326
  Serious: Yes (Other)
  Sender: FDA-Public Use
  Company Number: None

PATIENT
  Sex: Female
  Weight: 111.13 kg

DRUGS (1)
  1. NICORETTE [Suspect]
     Active Substance: NICOTINE
     Indication: SMOKING CESSATION THERAPY
     Dosage: ONGOING SEVERAL DAILY MOUTH
     Route: 048
     Dates: start: 2004

REACTIONS (5)
  - Back disorder [None]
  - Weight increased [None]
  - Drug dependence [None]
  - Arthropathy [None]
  - Plantar fasciitis [None]

NARRATIVE: CASE EVENT DATE: 2004
